FAERS Safety Report 5158984-2 (Version None)
Quarter: 2006Q4

REPORT INFORMATION
  Report Type: 
  Country: None (occurrence: None)
  Receive Date: 20061114
  Receipt Date: 20061031
  Transmission Date: 20070319
  Serious: Yes (Hospitalization)
  Sender: FDA-Public Use
  Company Number: B0396454A

PATIENT
  Age: 47 Year
  Sex: Female

DRUGS (1)
  1. EPIVIR [Suspect]
     Indication: HEPATITIS B
     Dosage: ORAL
     Route: 048
     Dates: start: 20050726, end: 20050912

REACTIONS (1)
  - DERMATITIS [None]
